FAERS Safety Report 15403221 (Version 1)
Quarter: 2018Q3

REPORT INFORMATION
  Report Type: Spontaneous
  Country: CZ (occurrence: CZ)
  Receive Date: 20180919
  Receipt Date: 20180919
  Transmission Date: 20181010
  Serious: Yes (Other)
  Sender: FDA-Public Use
  Company Number: CZ-GILEAD-2018-0363003

PATIENT
  Age: 53 Year
  Sex: Female

DRUGS (23)
  1. FLUDARABINE [Concomitant]
     Active Substance: FLUDARABINE PHOSPHATE
     Indication: CHRONIC LYMPHOCYTIC LEUKAEMIA
     Dosage: 25 MG/M2, UNK
     Route: 042
     Dates: start: 201402
  2. CYCLOPHOSPHAMIDE. [Concomitant]
     Active Substance: CYCLOPHOSPHAMIDE
     Indication: LYMPHADENOPATHY
     Dosage: 250 MG/M2, UNK
     Route: 042
     Dates: start: 200811, end: 200907
  3. CYCLOPHOSPHAMIDE. [Concomitant]
     Active Substance: CYCLOPHOSPHAMIDE
     Dosage: 750 UNK, UNK
     Route: 042
     Dates: start: 201705
  4. CYCLOPHOSPHAMIDE. [Concomitant]
     Active Substance: CYCLOPHOSPHAMIDE
     Dosage: 750 UNK, UNK
     Route: 042
     Dates: start: 201705
  5. RITUXIMAB. [Concomitant]
     Active Substance: RITUXIMAB
     Dosage: 375 UNK, UNK
     Route: 042
     Dates: start: 201705
  6. VENETOCLAX. [Concomitant]
     Active Substance: VENETOCLAX
     Dosage: 200 MG, QD
     Route: 065
     Dates: start: 201802
  7. ZYDELIG [Suspect]
     Active Substance: IDELALISIB
     Indication: CHRONIC LYMPHOCYTIC LEUKAEMIA
     Dosage: 150 MG, BID
     Route: 048
     Dates: start: 201603
  8. RITUXIMAB. [Concomitant]
     Active Substance: RITUXIMAB
     Indication: LYMPHADENOPATHY
     Dosage: 375 MG/M2, UNK
     Route: 042
     Dates: start: 200811, end: 200907
  9. DEXAMETHASONE. [Concomitant]
     Active Substance: DEXAMETHASONE
     Indication: LYMPHADENOPATHY
     Dosage: 40 MG, UNK
     Route: 048
  10. FLUDARABINE [Concomitant]
     Active Substance: FLUDARABINE PHOSPHATE
     Indication: LYMPHADENOPATHY
     Dosage: 25 MG/M2, UNK
     Route: 042
     Dates: start: 200811, end: 200907
  11. VENETOCLAX. [Concomitant]
     Active Substance: VENETOCLAX
     Indication: LYMPHADENOPATHY
     Dosage: 20 MG, QD
     Route: 065
     Dates: start: 201802
  12. RITUXIMAB. [Concomitant]
     Active Substance: RITUXIMAB
     Indication: CHRONIC LYMPHOCYTIC LEUKAEMIA
     Dosage: 500 MG/M2, UNK
     Route: 042
     Dates: start: 200811, end: 200907
  13. VENETOCLAX. [Concomitant]
     Active Substance: VENETOCLAX
     Indication: CHRONIC LYMPHOCYTIC LEUKAEMIA
     Dosage: 50 MG, QD
     Route: 065
     Dates: start: 201802
  14. CYCLOPHOSPHAMIDE. [Concomitant]
     Active Substance: CYCLOPHOSPHAMIDE
     Indication: CHRONIC LYMPHOCYTIC LEUKAEMIA
     Dosage: 250 MG/M2, UNK
     Route: 042
     Dates: start: 201402
  15. DEXAMETHASONE. [Concomitant]
     Active Substance: DEXAMETHASONE
     Indication: CHRONIC LYMPHOCYTIC LEUKAEMIA
  16. INSULIN [Concomitant]
     Active Substance: INSULIN NOS
     Indication: BLOOD GLUCOSE ABNORMAL
     Dosage: UNK UNKNOWN, UNK
     Route: 065
  17. VENETOCLAX. [Concomitant]
     Active Substance: VENETOCLAX
     Dosage: 100 MG, QD
     Route: 065
     Dates: start: 201802
  18. VENETOCLAX. [Concomitant]
     Active Substance: VENETOCLAX
     Dosage: 400 MG, QD
     Route: 065
     Dates: start: 201802
  19. ALLOPURINOL. [Concomitant]
     Active Substance: ALLOPURINOL
     Indication: PRODUCT USED FOR UNKNOWN INDICATION
     Dosage: 300 MG, QD
     Route: 065
  20. ZYDELIG [Suspect]
     Active Substance: IDELALISIB
     Indication: LYMPHADENOPATHY
  21. RITUXIMAB. [Concomitant]
     Active Substance: RITUXIMAB
     Dosage: 500 MG/M2, UNK
     Route: 042
     Dates: start: 201402
  22. RITUXIMAB. [Concomitant]
     Active Substance: RITUXIMAB
     Dosage: 500 MG/M2, UNK
     Route: 042
     Dates: start: 201603
  23. RITUXIMAB. [Concomitant]
     Active Substance: RITUXIMAB
     Dosage: 375 UNK, UNK
     Route: 042
     Dates: start: 201705

REACTIONS (1)
  - Disease progression [Unknown]
